FAERS Safety Report 5707035-7 (Version None)
Quarter: 2008Q2

REPORT INFORMATION
  Report Type: 
  Country: None (occurrence: None)
  Receive Date: 20080416
  Receipt Date: 20080415
  Transmission Date: 20081010
  Serious: Yes (Death)
  Sender: FDA-Public Use
  Company Number: B0466291A

PATIENT
  Age: 9 Year
  Sex: Female
  Weight: 28 kg

DRUGS (4)
  1. SALMETEROL [Suspect]
     Indication: ASTHMA
     Dosage: 100MCG PER DAY
     Route: 055
  2. FLUTICASONE [Concomitant]
     Indication: ASTHMA
     Dosage: 250MCG TWICE PER DAY
     Route: 055
  3. MONTELUKAST SODIUM [Concomitant]
     Indication: ASTHMA
     Dosage: 5MG PER DAY
     Route: 048
     Dates: start: 20060101
  4. ALBUTEROL [Concomitant]
     Indication: ASTHMA
     Route: 055

REACTIONS (1)
  - ASTHMA [None]
